FAERS Safety Report 23365970 (Version 1)
Quarter: 2024Q1

REPORT INFORMATION
  Report Type: Spontaneous
  Country: GB (occurrence: GB)
  Receive Date: 20240104
  Receipt Date: 20240104
  Transmission Date: 20240410
  Serious: Yes (Other)
  Sender: FDA-Public Use
  Company Number: GB-ORGANON-O2312GBR002271

PATIENT
  Age: 64 Year

DRUGS (4)
  1. DIAZEPAM [Suspect]
     Active Substance: DIAZEPAM
     Indication: Product used for unknown indication
     Dosage: IN THE EVENING
     Route: 065
  2. DEPAKOTE [Suspect]
     Active Substance: DIVALPROEX SODIUM
     Indication: Product used for unknown indication
     Dosage: UNK
     Route: 065
  3. HALDOL [Suspect]
     Active Substance: HALOPERIDOL
     Indication: Product used for unknown indication
     Dosage: UNK
     Route: 065
  4. ASENAPINE MALEATE [Suspect]
     Active Substance: ASENAPINE MALEATE
     Indication: Product used for unknown indication
     Dosage: TAKES SYCREST TWICE A DAY, IN THE MORNING AND EVENING.
     Route: 065
     Dates: start: 2023

REACTIONS (8)
  - Neuropathy peripheral [Unknown]
  - Hypoaesthesia oral [Unknown]
  - Memory impairment [Unknown]
  - Urinary incontinence [Unknown]
  - Rhinorrhoea [Unknown]
  - Drooling [Unknown]
  - Cognitive disorder [Unknown]
  - Drug interaction [Unknown]
